FAERS Safety Report 9284590 (Version 1)
Quarter: 2013Q2

REPORT INFORMATION
  Report Type: Spontaneous
  Country: JP (occurrence: JP)
  Receive Date: 20130512
  Receipt Date: 20130512
  Transmission Date: 20140414
  Serious: Yes (Life-Threatening, Other)
  Sender: FDA-Public Use
  Company Number: PHBS2003JP01189

PATIENT
  Age: 65 Year
  Sex: Male

DRUGS (4)
  1. TEGRETOL [Suspect]
     Indication: BIPOLAR I DISORDER
     Dosage: 800 MG/DAY
     Route: 048
     Dates: start: 19941003, end: 20010805
  2. CONTOMIN [Suspect]
     Dosage: 60 MG/DAY
     Route: 048
     Dates: start: 19950816, end: 20010805
  3. LIMAS [Suspect]
     Dosage: 1200 MG/DAY
     Route: 048
     Dates: start: 19900309, end: 20010805
  4. LIPITOR [Suspect]
     Dosage: 10 MG/DAY
     Route: 048
     Dates: start: 20001107, end: 20010805

REACTIONS (6)
  - Pneumonia [Recovered/Resolved]
  - Musculoskeletal stiffness [Recovered/Resolved]
  - Blood creatine phosphokinase increased [Recovered/Resolved]
  - Renal impairment [Recovered/Resolved]
  - Pyrexia [Recovered/Resolved]
  - Neuroleptic malignant syndrome [Recovered/Resolved]
